FAERS Safety Report 22967358 (Version 2)
Quarter: 2023Q4

REPORT INFORMATION
  Report Type: Spontaneous
  Country: US (occurrence: US)
  Receive Date: 20230921
  Receipt Date: 20231219
  Transmission Date: 20240109
  Serious: Yes (Other)
  Sender: FDA-Public Use
  Company Number: US-PFIZER INC-PV202300156421

PATIENT
  Age: 84 Year
  Sex: Female
  Weight: 46.7 kg

DRUGS (4)
  1. IBRANCE [Suspect]
     Active Substance: PALBOCICLIB
     Indication: Breast cancer female
     Dosage: 1 TAB DAILY, TAKE ON DAYS 1-21 OUT OF A 28 DAY CYCLE
     Route: 048
     Dates: end: 20230714
  2. IBRANCE [Suspect]
     Active Substance: PALBOCICLIB
     Indication: Hormone receptor positive HER2 negative breast cancer
     Dosage: 100 MG, CYCLIC [TAKE 1 TABLET BY MOUTH DAILY FOR CANCER. TAKE ON DAYS 1-21 OUT OF A 28 DAY CYCLE]
     Route: 048
     Dates: start: 20230815
  3. IBRANCE [Suspect]
     Active Substance: PALBOCICLIB
     Indication: Malignant nipple neoplasm female
  4. LEVAQUIN [Concomitant]
     Active Substance: LEVOFLOXACIN
     Dosage: UNK

REACTIONS (2)
  - Neutropenia [Unknown]
  - Product prescribing error [Unknown]
